FAERS Safety Report 10080059 (Version 1)
Quarter: 2014Q2

REPORT INFORMATION
  Report Type: Spontaneous
  Country: RS (occurrence: RS)
  Receive Date: 20140415
  Receipt Date: 20140415
  Transmission Date: 20141212
  Serious: Yes (Other)
  Sender: FDA-Public Use
  Company Number: RS-ACTAVIS-2014-07916

PATIENT
  Sex: Female

DRUGS (1)
  1. DOCETAXEL [Suspect]
     Indication: OVARIAN CANCER
     Dosage: 75 MG/M2
     Route: 042
     Dates: start: 20131230

REACTIONS (3)
  - Interstitial lung disease [Unknown]
  - Cough [Unknown]
  - White blood cell count increased [Unknown]
